FAERS Safety Report 8153537-6 (Version None)
Quarter: 2012Q1

REPORT INFORMATION
  Report Type: 
  Country: None (occurrence: None)
  Receive Date: 20120103
  Receipt Date: 20111029
  Transmission Date: 20120608
  Serious: No
  Sender: FDA-Public Use
  Company Number: AE-2011-002846

PATIENT
  Age: 49 Year
  Sex: Male
  Weight: 127.0072 kg

DRUGS (7)
  1. INCIVEK [Suspect]
     Dosage: (3 IN 1 D),ORAL
     Route: 048
     Dates: start: 20111027
  2. RIBAVRIN (RIBAVIRIN) [Concomitant]
  3. OXYCONTIN [Concomitant]
  4. PERCOCET [Concomitant]
  5. HIGH BLOOD PRESSURE PILL [Concomitant]
  6. PEGASYS [Concomitant]
  7. WATER PILL (AQUA-BAN) [Concomitant]

REACTIONS (1)
  - HEADACHE [None]
